FAERS Safety Report 22279940 (Version 11)
Quarter: 2024Q4

REPORT INFORMATION
  Report Type: Report from Study
  Country: CA (occurrence: CA)
  Receive Date: 20230503
  Receipt Date: 20241028
  Transmission Date: 20250115
  Serious: Yes (Hospitalization)
  Sender: HLS THERAPEUTICS
  Company Number: CA-HLS-202201572

PATIENT
  Age: 41 Year
  Sex: Male

DRUGS (4)
  1. CLOZARIL [Suspect]
     Active Substance: CLOZAPINE
     Indication: Product used for unknown indication
     Route: 048
     Dates: start: 20120404, end: 20240724
  2. CLONAZEPAM [Concomitant]
     Active Substance: CLONAZEPAM
     Indication: Product used for unknown indication
     Dosage: TWICE A DAY
     Route: 065
  3. SERTRALINE [Concomitant]
     Active Substance: SERTRALINE HYDROCHLORIDE
     Indication: Product used for unknown indication
     Route: 048
  4. LURASIDONE [Concomitant]
     Active Substance: LURASIDONE
     Indication: Product used for unknown indication
     Dosage: AT SUPPER
     Route: 048

REACTIONS (22)
  - Blood pressure decreased [Recovered/Resolved]
  - Blood pressure decreased [Recovered/Resolved]
  - Blood pressure decreased [Recovered/Resolved]
  - Blood pressure decreased [Recovered/Resolved]
  - Hyperhidrosis [Recovered/Resolved]
  - Dizziness [Recovered/Resolved]
  - Dizziness [Recovered/Resolved]
  - Somnolence [Unknown]
  - Foetal heart rate increased [Recovered/Resolved]
  - Tachycardia [Recovered/Resolved]
  - Salivary hypersecretion [Recovered/Resolved]
  - Salivary hypersecretion [Recovered/Resolved]
  - Salivary hypersecretion [Recovered/Resolved]
  - Salivary hypersecretion [Recovered/Resolved]
  - Hypertonia [Recovered/Resolved]
  - Increased appetite [Unknown]
  - Nausea [Unknown]
  - Dizziness [Recovered/Resolved]
  - Obsessive-compulsive disorder [Unknown]
  - Psychotic disorder [Unknown]
  - Visual impairment [Recovered/Resolved]
  - White blood cell count increased [Unknown]

NARRATIVE: CASE EVENT DATE: 20220610
